FAERS Safety Report 14976536 (Version 3)
Quarter: 2018Q2

REPORT INFORMATION
  Report Type: Report from Study
  Country: US (occurrence: US)
  Receive Date: 20180605
  Receipt Date: 20180615
  Transmission Date: 20180711
  Serious: Yes (Life-Threatening, Other)
  Sender: FDA-Public Use
  Company Number: US-JNJFOC-20180218229

PATIENT
  Age: 50 Year
  Sex: Female
  Weight: 65.77 kg

DRUGS (4)
  1. DARZALEX [Suspect]
     Active Substance: DARATUMUMAB
     Indication: NEOPLASM MALIGNANT
     Route: 042
     Dates: start: 201612
  2. POMALIDOMIDE [Concomitant]
     Active Substance: POMALIDOMIDE
     Indication: NEOPLASM MALIGNANT
     Dates: start: 20180511
  3. DARZALEX [Suspect]
     Active Substance: DARATUMUMAB
     Indication: NEOPLASM MALIGNANT
     Dosage: RECEIVED ON AN UNSPECIFIED DATE IN FEB-2018 OR MAR-2018
     Route: 042
     Dates: end: 201803
  4. DARZALEX [Suspect]
     Active Substance: DARATUMUMAB
     Indication: NEOPLASM MALIGNANT
     Route: 042
     Dates: start: 201309

REACTIONS (17)
  - Weight increased [Unknown]
  - Adverse drug reaction [Unknown]
  - Hypersensitivity [Unknown]
  - Infusion related reaction [Unknown]
  - Hypersensitivity [Unknown]
  - Headache [Unknown]
  - Cytokine release syndrome [Unknown]
  - Oxygen saturation decreased [Unknown]
  - Product counterfeit [Unknown]
  - Respiratory arrest [Unknown]
  - Malignant neoplasm progression [Unknown]
  - Blood pressure increased [Unknown]
  - Anger [Unknown]
  - Drug effect decreased [Unknown]
  - Hypotension [Unknown]
  - Cytokine release syndrome [Unknown]
  - Hyperhidrosis [Unknown]

NARRATIVE: CASE EVENT DATE: 201401
